FAERS Safety Report 24127417 (Version 1)
Quarter: 2024Q3

REPORT INFORMATION
  Report Type: Spontaneous
  Country: CN (occurrence: CN)
  Receive Date: 20240723
  Receipt Date: 20240723
  Transmission Date: 20241016
  Serious: Yes (Life-Threatening, Other)
  Sender: PURDUE
  Company Number: CN-NAPPMUNDI-GBR-2024-0118296

PATIENT
  Age: 81 Year
  Sex: Female
  Weight: 29 kg

DRUGS (2)
  1. MORPHINE SULFATE [Suspect]
     Active Substance: MORPHINE SULFATE
     Indication: Pain
     Dosage: 120 MILLIGRAM, Q12H (EVERY 12 HOURS)
     Route: 048
     Dates: start: 20240706, end: 202407
  2. MORPHINE SULFATE [Suspect]
     Active Substance: MORPHINE SULFATE
     Dosage: 150 MILLIGRAM, Q12H (EVERY 12 HOURS)
     Route: 048
     Dates: start: 20240710, end: 20240710

REACTIONS (4)
  - Altered state of consciousness [Recovering/Resolving]
  - Blood pressure decreased [Recovering/Resolving]
  - Respiratory rate decreased [Recovering/Resolving]
  - Overdose [Unknown]

NARRATIVE: CASE EVENT DATE: 20240710
